FAERS Safety Report 7653942-8 (Version None)
Quarter: 2011Q3

REPORT INFORMATION
  Report Type: 
  Country: None (occurrence: None)
  Receive Date: 20110803
  Receipt Date: 20110725
  Transmission Date: 20111222
  Serious: Yes (Other)
  Sender: FDA-Public Use
  Company Number: CA-JNJFOC-20110711931

PATIENT
  Sex: Female
  Weight: 62 kg

DRUGS (4)
  1. IMURAN [Concomitant]
  2. VENTOLIN HFA [Concomitant]
  3. ADVAIR DISKUS 100/50 [Concomitant]
  4. REMICADE [Suspect]
     Indication: CROHN'S DISEASE
     Route: 042
     Dates: start: 20100315

REACTIONS (1)
  - LIMB CRUSHING INJURY [None]
